FAERS Safety Report 18022845 (Version 1)
Quarter: 2020Q3

REPORT INFORMATION
  Report Type: Spontaneous
  Country: US (occurrence: US)
  Receive Date: 20200715
  Receipt Date: 20200715
  Transmission Date: 20201103
  Serious: No
  Sender: FDA-Public Use
  Company Number: US-BRISTOL-MYERS SQUIBB COMPANY-BMS-2020-055421

PATIENT
  Age: 14 Year
  Sex: Female

DRUGS (2)
  1. 5?FLUOROURACIL [FLUOROURACIL] [Suspect]
     Active Substance: FLUOROURACIL
     Indication: SCAR
     Dosage: THREE TREATMENTS WITH FLAR, FOUR OCCASIONS
     Route: 026
  2. TRIAMCINOLONE ACETONIDE. [Suspect]
     Active Substance: TRIAMCINOLONE ACETONIDE
     Indication: SCAR
     Dosage: THREE TREATMENTS WITH FLAR, FOUR OCCASIONS
     Route: 026

REACTIONS (2)
  - Erythema [Unknown]
  - Intentional product use issue [Unknown]
